FAERS Safety Report 11745807 (Version 1)
Quarter: 2015Q4

REPORT INFORMATION
  Report Type: Spontaneous
  Country: US (occurrence: None)
  Receive Date: 20151116
  Receipt Date: 20151116
  Transmission Date: 20160304
  Serious: Yes (Other)
  Sender: FDA-Public Use
  Company Number: None

PATIENT
  Age: 39 Year
  Sex: Female
  Weight: 90.72 kg

DRUGS (3)
  1. TYLENOL [Concomitant]
     Active Substance: ACETAMINOPHEN
  2. HYDROCODONE [Concomitant]
     Active Substance: HYDROCODONE
  3. PALIPERIDONE DR 3 MG TABLETS 3MG WALGREENS [Suspect]
     Active Substance: PALIPERIDONE
     Indication: SCHIZOAFFECTIVE DISORDER BIPOLAR TYPE
     Dosage: ONE IN THE MORNING TWO AT
     Route: 048
     Dates: start: 20150803, end: 20151115

REACTIONS (4)
  - Hypersomnia [None]
  - Visual impairment [None]
  - Asthenia [None]
  - Sensory disturbance [None]

NARRATIVE: CASE EVENT DATE: 20151103
